FAERS Safety Report 16286454 (Version 2)
Quarter: 2019Q2

REPORT INFORMATION
  Report Type: Spontaneous
  Country: AT (occurrence: AT)
  Receive Date: 20190508
  Receipt Date: 20190529
  Transmission Date: 20190711
  Serious: Yes (Other)
  Sender: FDA-Public Use
  Company Number: AT-ASTRAZENECA-2019SE65790

PATIENT
  Age: 65 Year
  Sex: Female
  Weight: 62 kg

DRUGS (4)
  1. CRESTOR [Suspect]
     Active Substance: ROSUVASTATIN CALCIUM
     Route: 048
     Dates: start: 20190208, end: 20190216
  2. BEZAFIBRATE [Suspect]
     Active Substance: BEZAFIBRATE
     Route: 065
     Dates: start: 20190225, end: 20190228
  3. BEZAFIBRATE [Suspect]
     Active Substance: BEZAFIBRATE
     Route: 065
     Dates: start: 20190209, end: 20190212
  4. CRESTOR [Suspect]
     Active Substance: ROSUVASTATIN CALCIUM
     Route: 048
     Dates: start: 20190225, end: 20190228

REACTIONS (10)
  - Anaesthesia [Not Recovered/Not Resolved]
  - Arrhythmia [Unknown]
  - Anhedonia [Unknown]
  - Myalgia [Unknown]
  - Headache [Unknown]
  - Peripheral swelling [Unknown]
  - Sleep disorder [Unknown]
  - Myalgia [Unknown]
  - Nausea [Recovered/Resolved]
  - Decreased interest [Unknown]

NARRATIVE: CASE EVENT DATE: 201902
